FAERS Safety Report 11030907 (Version 1)
Quarter: 2015Q2

REPORT INFORMATION
  Report Type: Spontaneous
  Country: US (occurrence: None)
  Receive Date: 20150414
  Receipt Date: 20150414
  Transmission Date: 20150821
  Serious: Yes (Other)
  Sender: FDA-Public Use
  Company Number: None

PATIENT
  Age: 57 Year
  Sex: Female
  Weight: 108.86 kg

DRUGS (2)
  1. MICARDIS [Concomitant]
     Active Substance: TELMISARTAN
  2. LOTEMAX [Suspect]
     Active Substance: LOTEPREDNOL ETABONATE
     Indication: DRY EYE
     Dosage: INTO THE EYE; 1 DROP FOUR TIMES

REACTIONS (8)
  - Lacrimation increased [None]
  - Instillation site swelling [None]
  - Instillation site irritation [None]
  - Instillation site erythema [None]
  - Instillation site pruritus [None]
  - Product quality issue [None]
  - Instillation site hypersensitivity [None]
  - Drug administration error [None]

NARRATIVE: CASE EVENT DATE: 20150410
